FAERS Safety Report 4313838-6 (Version None)
Quarter: 2004Q1

REPORT INFORMATION
  Report Type: 
  Country: None (occurrence: None)
  Receive Date: 20040304
  Receipt Date: 20031218
  Transmission Date: 20041129
  Serious: Yes (Hospitalization)
  Sender: FDA-Public Use
  Company Number: 2003039458

PATIENT
  Age: 21 Year
  Sex: Male

DRUGS (3)
  1. GEODON [Suspect]
     Indication: BIPOLAR DISORDER
     Dosage: 40 MG (BID), ORAL
     Route: 048
     Dates: start: 20021220, end: 20021221
  2. GEODON [Suspect]
     Indication: DEPRESSION
     Dosage: 40 MG (BID), ORAL
     Route: 048
     Dates: start: 20021220, end: 20021221
  3. SERTRALINE HCL [Concomitant]

REACTIONS (1)
  - DYSTONIA [None]
